FAERS Safety Report 18736209 (Version 1)
Quarter: 2021Q1

REPORT INFORMATION
  Report Type: Spontaneous
  Country: US (occurrence: US)
  Receive Date: 20210113
  Receipt Date: 20210113
  Transmission Date: 20210419
  Serious: Yes (Other)
  Sender: FDA-Public Use
  Company Number: NVSC2021US005459

PATIENT
  Sex: Female

DRUGS (1)
  1. AFINITOR [Suspect]
     Active Substance: EVEROLIMUS
     Indication: PRODUCT USED FOR UNKNOWN INDICATION
     Dosage: UNK
     Route: 065

REACTIONS (7)
  - Oral discomfort [Unknown]
  - Vomiting [Unknown]
  - Throat irritation [Unknown]
  - Dysphagia [Unknown]
  - Respiratory tract haemorrhage [Unknown]
  - Nasal discomfort [Unknown]
  - Oral pain [Unknown]
